FAERS Safety Report 4526532-3 (Version None)
Quarter: 2004Q4

REPORT INFORMATION
  Report Type: 
  Country: None (occurrence: None)
  Receive Date: 20041210
  Receipt Date: 20041128
  Transmission Date: 20050328
  Serious: Yes (Other)
  Sender: FDA-Public Use
  Company Number: US-JNJFOC-20041201346

PATIENT
  Age: 14 Month
  Sex: Female
  Weight: 9.5255 kg

DRUGS (1)
  1. MOTRIN [Suspect]
     Indication: PYREXIA
     Dosage: 1/2 TEASPOON Q 6 HOURS
     Dates: start: 20041125, end: 20041128

REACTIONS (14)
  - APNOEA [None]
  - CRYING [None]
  - CYANOSIS [None]
  - DIARRHOEA [None]
  - DRUG HYPERSENSITIVITY [None]
  - EYE SWELLING [None]
  - FEBRILE CONVULSION [None]
  - HYPOTONIA [None]
  - LETHARGY [None]
  - SCRATCH [None]
  - SWELLING FACE [None]
  - TEETHING [None]
  - UNRESPONSIVE TO VERBAL STIMULI [None]
  - VISION BLURRED [None]
